FAERS Safety Report 14895961 (Version 1)
Quarter: 2018Q2

REPORT INFORMATION
  Report Type: Spontaneous
  Country: US (occurrence: US)
  Receive Date: 20180427
  Receipt Date: 20180427
  Transmission Date: 20180711
  Serious: Yes (Hospitalization)
  Sender: FDA-Public Use
  Company Number: None

PATIENT
  Sex: Male
  Weight: 56.8 kg

DRUGS (3)
  1. CISPLATIN. [Suspect]
     Active Substance: CISPLATIN
     Dates: end: 20180206
  2. GEMCITABINE HYDROCHLORIDE. [Suspect]
     Active Substance: GEMCITABINE HYDROCHLORIDE
     Dates: end: 20180405
  3. TAXOL [Suspect]
     Active Substance: PACLITAXEL
     Dates: end: 20180405

REACTIONS (2)
  - Back pain [None]
  - Staphylococcal bacteraemia [None]

NARRATIVE: CASE EVENT DATE: 20180421
